FAERS Safety Report 8390847-1 (Version None)
Quarter: 2012Q2

REPORT INFORMATION
  Report Type: 
  Country: None (occurrence: None)
  Receive Date: 20120529
  Receipt Date: 20120522
  Transmission Date: 20120825
  Serious: Yes (Hospitalization)
  Sender: FDA-Public Use
  Company Number: KR-UCBSA-057859

PATIENT
  Age: 53 Year
  Sex: Female
  Weight: 46 kg

DRUGS (8)
  1. REBAMIPIDE [Concomitant]
     Indication: PROPHYLAXIS
     Route: 048
     Dates: start: 20070314
  2. METHOTREXATE [Concomitant]
     Indication: RHEUMATOID ARTHRITIS
     Route: 048
     Dates: start: 20070917
  3. CIMZIA [Suspect]
     Route: 058
     Dates: start: 20100601
  4. MELOXICAM [Concomitant]
     Indication: RHEUMATOID ARTHRITIS
     Route: 048
     Dates: start: 20090629
  5. FOLIC ACID [Concomitant]
     Indication: PROPHYLAXIS
     Route: 048
     Dates: start: 20070314
  6. PARAMACET [Concomitant]
     Indication: PAIN
     Dosage: DOSE PER INTAKE: 1 TABLET, TWICE PER DAY
     Route: 048
     Dates: start: 20100223
  7. PREDNISOLONE [Concomitant]
     Indication: RHEUMATOID ARTHRITIS
     Route: 048
     Dates: start: 20090921
  8. ZOLPIDEM [Concomitant]
     Indication: INSOMNIA
     Route: 048
     Dates: start: 20091215

REACTIONS (1)
  - HERPES ZOSTER [None]
